FAERS Safety Report 24155125 (Version 3)
Quarter: 2024Q3

REPORT INFORMATION
  Report Type: Report from Study
  Country: US (occurrence: US)
  Receive Date: 20240731
  Receipt Date: 20240830
  Transmission Date: 20241016
  Serious: No
  Sender: AMGEN
  Company Number: US-AMGEN-USASL2024148875

PATIENT
  Age: 67 Year
  Sex: Female

DRUGS (2)
  1. NEULASTA [Suspect]
     Active Substance: PEGFILGRASTIM
     Indication: Lung carcinoma cell type unspecified stage 0
     Dosage: UNK, Q3WK
     Route: 065
  2. NEULASTA [Suspect]
     Active Substance: PEGFILGRASTIM
     Dosage: UNK, Q3WK
     Route: 065

REACTIONS (1)
  - Device adhesion issue [Unknown]

NARRATIVE: CASE EVENT DATE: 20240724
